FAERS Safety Report 18220067 (Version 1)
Quarter: 2020Q3

REPORT INFORMATION
  Report Type: Spontaneous
  Country: US (occurrence: US)
  Receive Date: 20200902
  Receipt Date: 20200902
  Transmission Date: 20201103
  Serious: Yes (Hospitalization)
  Sender: FDA-Public Use
  Company Number: US-STRIDES ARCOLAB LIMITED-2019SP013132

PATIENT
  Age: 37 Year
  Sex: Female

DRUGS (1)
  1. AMLODIPINE [Suspect]
     Active Substance: AMLODIPINE BESYLATE
     Indication: HYPERTENSION
     Dosage: 10 MILLIGRAM/DAY
     Route: 065

REACTIONS (9)
  - Porphyromonas infection [Unknown]
  - Loose tooth [Unknown]
  - Gingival hypertrophy [Unknown]
  - Oropharyngeal plaque [Unknown]
  - Periodontitis [Unknown]
  - Discomfort [Unknown]
  - Gingival pain [Unknown]
  - Tongue thrust [Unknown]
  - Gingival bleeding [Unknown]
